FAERS Safety Report 15314878 (Version 2)
Quarter: 2019Q1

REPORT INFORMATION
  Report Type: Spontaneous
  Country: FR (occurrence: FR)
  Receive Date: 20180824
  Receipt Date: 20190109
  Transmission Date: 20190417
  Serious: Yes (Hospitalization, Other)
  Sender: FDA-Public Use
  Company Number: FR-AUROBINDO-AUR-APL-2018-042977

PATIENT
  Age: 11 Month
  Sex: Female
  Weight: 8 kg

DRUGS (3)
  1. AMOXICILLIN. [Suspect]
     Active Substance: AMOXICILLIN
     Indication: OTITIS MEDIA ACUTE
     Dosage: 250 MILLIGRAM, ONCE A DAY
     Route: 048
     Dates: start: 20171107, end: 20171113
  2. AUGMENTIN [Suspect]
     Active Substance: AMOXICILLIN\CLAVULANATE POTASSIUM
     Indication: OTITIS MEDIA ACUTE
     Dosage: UNK, 1 PRISE
     Route: 048
     Dates: start: 20171116, end: 20171116
  3. NIFLURIL                           /00889901/ [Suspect]
     Active Substance: MORNIFLUMATE
     Indication: OTITIS MEDIA ACUTE
     Dosage: 200 MILLIGRAM, ONCE A DAY
     Route: 054
     Dates: start: 20171107, end: 20171117

REACTIONS (2)
  - Agranulocytosis [Not Recovered/Not Resolved]
  - Anaemia [Not Recovered/Not Resolved]

NARRATIVE: CASE EVENT DATE: 20171115
